FAERS Safety Report 10054294 (Version 3)
Quarter: 2014Q2

REPORT INFORMATION
  Report Type: Report from Study
  Country: US (occurrence: US)
  Receive Date: 20140402
  Receipt Date: 20140516
  Transmission Date: 20141212
  Serious: Yes (Hospitalization)
  Sender: FDA-Public Use
  Company Number: US-ALEXION-A201400988

PATIENT
  Sex: 0

DRUGS (1)
  1. SOLIRIS [Suspect]
     Indication: HAEMOLYTIC URAEMIC SYNDROME
     Dosage: 1200 MG, Q2W
     Route: 042
     Dates: start: 20131206

REACTIONS (5)
  - Unevaluable event [Unknown]
  - Paraesthesia [Not Recovered/Not Resolved]
  - Swelling [Unknown]
  - Oedema peripheral [None]
  - Haemorrhage [Unknown]
